FAERS Safety Report 8883485 (Version 1)
Quarter: 2012Q4

REPORT INFORMATION
  Report Type: 
  Country: US (occurrence: US)
  Receive Date: 20121102
  Receipt Date: 20121102
  Transmission Date: 20130627
  Serious: No
  Sender: FDA-Public Use
  Company Number: US-ASTRAZENECA-2012SE04829

PATIENT
  Age: 61 Year
  Sex: Female
  Weight: 90.7 kg

DRUGS (4)
  1. CRESTOR [Suspect]
     Indication: BLOOD CHOLESTEROL INCREASED
     Route: 048
     Dates: start: 2005, end: 200907
  2. CRESTOR [Suspect]
     Indication: BLOOD CHOLESTEROL INCREASED
     Route: 048
     Dates: start: 201001
  3. ZYRTEC [Concomitant]
  4. SINGULAIR [Concomitant]

REACTIONS (2)
  - Alopecia [Unknown]
  - Memory impairment [Unknown]
